FAERS Safety Report 8814186 (Version 1)
Quarter: 2012Q4

REPORT INFORMATION
  Report Type: Spontaneous
  Country: DK (occurrence: None)
  Receive Date: 20120925
  Receipt Date: 20120925
  Transmission Date: 20130627
  Serious: Yes (Other)
  Sender: FDA-Public Use
  Company Number: 2012MA011393

PATIENT
  Age: 57 Year

DRUGS (2)
  1. CARBOPLATIN [Suspect]
     Indication: DRUG USE FOR UNKNOWN INDICATION
     Route: 042
  2. GEMCITABINE [Concomitant]

REACTIONS (3)
  - Rash maculo-papular [None]
  - Pruritus [None]
  - Hyperhidrosis [None]
